FAERS Safety Report 9525186 (Version 1)
Quarter: 2013Q1

REPORT INFORMATION
  Report Type: Spontaneous
  Country: US (occurrence: None)
  Receive Date: 20130314
  Receipt Date: 20130314
  Transmission Date: 20140127
  Serious: No
  Sender: FDA-Public Use
  Company Number: 1301USA012385

PATIENT
  Age: 58 Year
  Sex: Male

DRUGS (3)
  1. PEGINTRON (PEGINTERFERON ALFA-2B) POWDER FOR INJECTION [Suspect]
     Indication: HEPATITIS C
     Dosage: UNK
     Dates: start: 20120802
  2. VICTRELIS (BOCEPREVIR) CAPSULE [Suspect]
     Indication: HEPATITIS C
     Dosage: UNK
  3. RIBAVIRIN (RIBAVIRIN) CAPSULE [Suspect]
     Indication: HEPATITIS C
     Dosage: UNK

REACTIONS (10)
  - Injection site swelling [None]
  - Pyrexia [None]
  - Weight decreased [None]
  - Arthralgia [None]
  - Abdominal pain upper [None]
  - Swelling [None]
  - Decreased immune responsiveness [None]
  - Rash [None]
  - Confusional state [None]
  - Thinking abnormal [None]
